FAERS Safety Report 18817414 (Version 1)
Quarter: 2021Q1

REPORT INFORMATION
  Report Type: Spontaneous
  Country: US (occurrence: US)
  Receive Date: 20210201
  Receipt Date: 20210201
  Transmission Date: 20210419
  Serious: Yes (Other)
  Sender: FDA-Public Use
  Company Number: US-PACIRA-2021000039

PATIENT
  Age: 64 Year
  Sex: Male

DRUGS (15)
  1. FENT 100MCG [Concomitant]
     Indication: PREOPERATIVE CARE
     Dosage: 50 MCG PREOPERATIVE
     Route: 065
  2. OXYCODONE [Concomitant]
     Active Substance: OXYCODONE
     Indication: POSTOPERATIVE CARE
     Dosage: 5?10 MG Q6H OR AS NEEDED
     Route: 065
  3. VANCOMYOCIN [Concomitant]
     Active Substance: VANCOMYCIN
     Indication: PREOPERATIVE CARE
     Dosage: 1 G PRE OP
  4. TYLENOL [Concomitant]
     Active Substance: ACETAMINOPHEN
     Indication: POSTOPERATIVE CARE
     Dosage: NOT PROVIDED
     Route: 065
  5. EXPAREL [Suspect]
     Active Substance: BUPIVACAINE
     Indication: POSTOPERATIVE ANALGESIA
     Dosage: 266 MG, 20CC
     Route: 065
  6. VERSED 2MG [Concomitant]
     Indication: PREOPERATIVE CARE
     Dosage: 2 MG PERIOPERATIVE
     Route: 065
  7. FENT 100MCG [Concomitant]
     Indication: PREOPERATIVE CARE
     Dosage: 100 MCG PERIOPERATIVE
     Route: 065
  8. ENTERIC?COATED ASPIRIN 325 MG [Concomitant]
     Indication: THROMBOSIS PROPHYLAXIS
     Dosage: BID
     Route: 065
  9. GABAPENTIN 300 [Concomitant]
     Active Substance: GABAPENTIN
     Indication: POSTOPERATIVE CARE
     Dosage: BID (2 WK)
     Route: 065
  10. LOVENOX 40 [Concomitant]
     Indication: POSTOPERATIVE CARE
     Dosage: NOT PROVIDED
     Route: 065
  11. ULTRAM 50 [Concomitant]
     Indication: POSTOPERATIVE CARE
     Dosage: NOT PROVIDED
     Route: 065
  12. MOBIC 7.5 [Concomitant]
     Indication: POSTOPERATIVE ANALGESIA
     Dosage: NOT PROVIDED
     Route: 065
  13. COLACE 100 [Concomitant]
     Indication: POSTOPERATIVE CARE
     Dosage: NOT PROVIDED
     Route: 065
  14. PHENERGAN 25 [Concomitant]
     Indication: POSTOPERATIVE CARE
     Dosage: NOT PROVIDED
     Route: 065
  15. ANCEF [Concomitant]
     Active Substance: CEFAZOLIN SODIUM
     Indication: PREOPERATIVE CARE
     Dosage: 1 G PRE OP

REACTIONS (1)
  - Postoperative wound infection [Unknown]
